FAERS Safety Report 25480375 (Version 3)
Quarter: 2025Q3

REPORT INFORMATION
  Report Type: Spontaneous
  Country: IN (occurrence: IN)
  Receive Date: 20250625
  Receipt Date: 20250730
  Transmission Date: 20251021
  Serious: Yes (Death, Hospitalization)
  Sender: PFIZER
  Company Number: IN-PFIZER INC-PV202500075342

PATIENT
  Age: 66 Year
  Sex: Male

DRUGS (1)
  1. CRIZOTINIB [Suspect]
     Active Substance: CRIZOTINIB
     Route: 048
     Dates: start: 20240830, end: 20250705

REACTIONS (3)
  - Death [Fatal]
  - Amnesia [Unknown]
  - Speech disorder [Unknown]
